FAERS Safety Report 12293228 (Version 1)
Quarter: 2016Q2

REPORT INFORMATION
  Report Type: Spontaneous
  Country: US (occurrence: US)
  Receive Date: 20160421
  Receipt Date: 20160421
  Transmission Date: 20160815
  Serious: Yes (Hospitalization)
  Sender: FDA-Public Use
  Company Number: US-TAIHO ONCOLOGY INC-EU-2016-00743

PATIENT
  Age: 72 Year
  Sex: Male

DRUGS (18)
  1. OMEPRAZOLE. [Concomitant]
     Active Substance: OMEPRAZOLE
     Dosage: NI
  2. GENERLAC [Concomitant]
     Active Substance: LACTULOSE
     Dosage: NI
  3. WARFARIN [Concomitant]
     Active Substance: WARFARIN
     Dosage: NI
  4. PROTONIX [Concomitant]
     Active Substance: PANTOPRAZOLE SODIUM
     Dosage: NI
  5. PROCHLORPERAZINE. [Concomitant]
     Active Substance: PROCHLORPERAZINE
     Dosage: NI
  6. MEGESTROL [Concomitant]
     Active Substance: MEGESTROL
     Dosage: NI
  7. FENTANYL. [Concomitant]
     Active Substance: FENTANYL
     Dosage: NI
  8. PARACETAMOL/OXYCODONE HYDROCHLORIDE [Concomitant]
     Dosage: NI
  9. MORPHINE SULFATE. [Concomitant]
     Active Substance: MORPHINE SULFATE
     Dosage: NI
  10. METRONIDAZOLE. [Concomitant]
     Active Substance: METRONIDAZOLE
     Dosage: NI
  11. STIVARGA [Concomitant]
     Active Substance: REGORAFENIB
     Dosage: NI
  12. MACROGOL [Concomitant]
     Active Substance: POLYETHYLENE GLYCOLS
     Dosage: NI
  13. OXYCODONE [Concomitant]
     Active Substance: OXYCODONE
     Dosage: NI
  14. MUPIROCIN. [Concomitant]
     Active Substance: MUPIROCIN
     Dosage: NI
  15. LISINOPRIL. [Concomitant]
     Active Substance: LISINOPRIL
     Dosage: NI
  16. LONSURF [Suspect]
     Active Substance: TIPIRACIL HYDROCHLORIDE\TRIFLURIDINE
     Indication: COLON CANCER
     Route: 048
     Dates: start: 20160322, end: 20160407
  17. METOPROLOL. [Concomitant]
     Active Substance: METOPROLOL
     Dosage: NI
  18. LEVOFLOXACIN. [Concomitant]
     Active Substance: LEVOFLOXACIN
     Dosage: NI

REACTIONS (1)
  - Thrombosis [Unknown]

NARRATIVE: CASE EVENT DATE: 20160407
